FAERS Safety Report 16838940 (Version 3)
Quarter: 2020Q1

REPORT INFORMATION
  Report Type: Other
  Country: CA (occurrence: CA)
  Receive Date: 20190923
  Receipt Date: 20200115
  Transmission Date: 20200409
  Serious: Yes (Other)
  Sender: FDA-Public Use
  Company Number: CA-PFIZER INC-2019403140

PATIENT
  Age: 25 Year
  Sex: Female

DRUGS (3)
  1. TACROLIMUS. [Suspect]
     Active Substance: TACROLIMUS
     Indication: PROPHYLAXIS AGAINST GRAFT VERSUS HOST DISEASE
     Dosage: 2-3 MG, 2X/DAY (EVERY 12 HOURS)
     Route: 048
     Dates: start: 20101117, end: 20110222
  2. PALIFERMIN [Suspect]
     Active Substance: PALIFERMIN
     Indication: PROPHYLAXIS AGAINST GRAFT VERSUS HOST DISEASE
     Dosage: UNK
     Route: 065
  3. METHOTREXATE SODIUM. [Suspect]
     Active Substance: METHOTREXATE SODIUM
     Indication: PROPHYLAXIS AGAINST GRAFT VERSUS HOST DISEASE
     Dosage: UNK
     Route: 065

REACTIONS (8)
  - Mucosal inflammation [Recovered/Resolved]
  - Chronic graft versus host disease [Not Recovered/Not Resolved]
  - Chronic graft versus host disease in liver [Recovered/Resolved]
  - Joint contracture [Not Recovered/Not Resolved]
  - Drug ineffective for unapproved indication [Unknown]
  - Off label use [Unknown]
  - Chronic graft versus host disease in skin [Not Recovered/Not Resolved]
  - Scleroderma [Unknown]

NARRATIVE: CASE EVENT DATE: 20101201
